FAERS Safety Report 4493075-5 (Version None)
Quarter: 2004Q4

REPORT INFORMATION
  Report Type: 
  Country: None (occurrence: None)
  Receive Date: 20041104
  Receipt Date: 20041014
  Transmission Date: 20050328
  Serious: Yes (Life-Threatening, Hospitalization, Disabling, Other)
  Sender: FDA-Public Use
  Company Number: US-GLAXOSMITHKLINE-A0529948A

PATIENT
  Age: 34 Year
  Sex: Male
  Weight: 97.3 kg

DRUGS (6)
  1. LAMICTAL [Suspect]
     Indication: BIPOLAR DISORDER
     Dosage: 3000MG SINGLE DOSE
     Route: 048
     Dates: start: 20040108, end: 20041011
  2. METFORMIN [Concomitant]
     Dosage: 500MG THREE TIMES PER DAY
  3. SEROQUEL [Concomitant]
     Dosage: 300MG AT NIGHT
  4. TOPAMAX [Concomitant]
     Dosage: 100MG TWICE PER DAY
  5. ZYPREXA [Concomitant]
     Dosage: 350MG AT NIGHT
  6. PAXIL CR [Concomitant]
     Dosage: 12.5MG PER DAY

REACTIONS (13)
  - ABASIA [None]
  - ABNORMAL SENSATION IN EYE [None]
  - BALANCE DISORDER [None]
  - COORDINATION ABNORMAL [None]
  - DEPRESSED LEVEL OF CONSCIOUSNESS [None]
  - EXCORIATION [None]
  - FALL [None]
  - HEPATOCELLULAR DAMAGE [None]
  - INTENTIONAL OVERDOSE [None]
  - SKIN REACTION [None]
  - SKIN ULCER [None]
  - STEVENS-JOHNSON SYNDROME [None]
  - SUICIDE ATTEMPT [None]
